FAERS Safety Report 15433969 (Version 3)
Quarter: 2020Q3

REPORT INFORMATION
  Report Type: Spontaneous
  Country: NL (occurrence: NL)
  Receive Date: 20180927
  Receipt Date: 20200805
  Transmission Date: 20201102
  Serious: Yes (Hospitalization)
  Sender: FDA-Public Use
  Company Number: NL-ACTELION-A-CH2018-179284

PATIENT
  Sex: Female

DRUGS (5)
  1. UPTRAVI [Suspect]
     Active Substance: SELEXIPAG
     Indication: PULMONARY ARTERIAL HYPERTENSION
     Dosage: 400 MCG, BID
     Route: 048
     Dates: start: 20161108
  2. ADCIRCA [Concomitant]
     Active Substance: TADALAFIL
     Dosage: UNK, QD
  3. VOLIBRIS [Concomitant]
     Active Substance: AMBRISENTAN
     Dosage: 10 MG, QD
  4. NPLATE [Concomitant]
     Active Substance: ROMIPLOSTIM
     Dosage: UNK, Q1WEEK
  5. UPTRAVI [Suspect]
     Active Substance: SELEXIPAG
     Dosage: 200 MCG, BID
     Route: 048

REACTIONS (5)
  - Weight decreased [Unknown]
  - Muscular weakness [Unknown]
  - Hospitalisation [Unknown]
  - Diarrhoea [Unknown]
  - Surgery [Unknown]
